FAERS Safety Report 14165934 (Version 1)
Quarter: 2017Q4

REPORT INFORMATION
  Report Type: Report from Study
  Country: CA (occurrence: CA)
  Receive Date: 20171107
  Receipt Date: 20171107
  Transmission Date: 20180321
  Serious: Yes (Other)
  Sender: FDA-Public Use
  Company Number: CA-JNJFOC-20171103912

PATIENT
  Age: 67 Year
  Sex: Male

DRUGS (1)
  1. STELARA [Suspect]
     Active Substance: USTEKINUMAB
     Indication: PSORIASIS
     Dosage: STRENGTH = 90 MG
     Route: 058
     Dates: start: 20140727

REACTIONS (3)
  - Prostatectomy [Recovering/Resolving]
  - Blood creatinine increased [Not Recovered/Not Resolved]
  - Calculus bladder [Recovering/Resolving]

NARRATIVE: CASE EVENT DATE: 2017
